FAERS Safety Report 5531819-1 (Version None)
Quarter: 2007Q4

REPORT INFORMATION
  Report Type: 
  Country: None (occurrence: None)
  Receive Date: 20071128
  Receipt Date: 20071128
  Transmission Date: 20080405
  Serious: No
  Sender: FDA-Public Use
  Company Number: None

PATIENT
  Age: 50 Year
  Sex: Female
  Weight: 74.8435 kg

DRUGS (1)
  1. CHANTIX [Suspect]
     Indication: SMOKING CESSATION THERAPY
     Dosage: 1 PILL 2X DAY PO
     Route: 048
     Dates: start: 20070811, end: 20070914

REACTIONS (13)
  - ABNORMAL BEHAVIOUR [None]
  - AGGRESSION [None]
  - ANOREXIA [None]
  - DISTURBANCE IN ATTENTION [None]
  - FEELING ABNORMAL [None]
  - HEADACHE [None]
  - HYPOSMIA [None]
  - LOSS OF LIBIDO [None]
  - MEMORY IMPAIRMENT [None]
  - MOOD SWINGS [None]
  - NAUSEA [None]
  - SUICIDAL IDEATION [None]
  - THINKING ABNORMAL [None]
